FAERS Safety Report 5933485-X (Version None)
Quarter: 2008Q4

REPORT INFORMATION
  Report Type: 
  Country: None (occurrence: None)
  Receive Date: 20081024
  Receipt Date: 20081013
  Transmission Date: 20090506
  Serious: Yes (Hospitalization)
  Sender: FDA-Public Use
  Company Number: 238970J08USA

PATIENT
  Age: 30 Year
  Sex: Female

DRUGS (4)
  1. REBIF [Suspect]
     Indication: MULTIPLE SCLEROSIS
     Dosage: 8.8 MCG, ONCE, SUBCUTANEOUS; 8.8 MCG, 3 IN 1 WEEKS, SUBCUTANEOUS
     Route: 058
     Dates: start: 20080722, end: 20080722
  2. REBIF [Suspect]
     Indication: MULTIPLE SCLEROSIS
     Dosage: 8.8 MCG, ONCE, SUBCUTANEOUS; 8.8 MCG, 3 IN 1 WEEKS, SUBCUTANEOUS
     Route: 058
     Dates: start: 20081013
  3. SOLU-MEDROL [Concomitant]
  4. PLAVIX [Concomitant]

REACTIONS (4)
  - DEVICE MIGRATION [None]
  - MUSCLE SPASMS [None]
  - PLATELET COUNT DECREASED [None]
  - POST PROCEDURAL HAEMORRHAGE [None]
